FAERS Safety Report 17629217 (Version 2)
Quarter: 2020Q2

REPORT INFORMATION
  Report Type: Spontaneous
  Country: US (occurrence: US)
  Receive Date: 20200406
  Receipt Date: 20200623
  Transmission Date: 20200713
  Serious: Yes (Hospitalization, Other)
  Sender: FDA-Public Use
  Company Number: US-BRISTOL-MYERS SQUIBB COMPANY-BMS-2020-027905

PATIENT
  Age: 45 Year
  Sex: Female
  Weight: 93.88 kg

DRUGS (2)
  1. COUMADIN [Suspect]
     Active Substance: WARFARIN SODIUM
     Indication: THROMBOSIS
     Dosage: 6 MILLIGRAM, DAILY (PHARMACY ADDED A 1 MG TABLET WITH THE 6 MG TABLET)
     Route: 048
     Dates: start: 20190523
  2. COUMADIN [Suspect]
     Active Substance: WARFARIN SODIUM
     Indication: PRODUCT USED FOR UNKNOWN INDICATION
     Dosage: 7 MILLIGRAM, DAILY (PHARMACY ADDED A 1 MG TABLET WITH THE 6 MG TABLET)
     Route: 048

REACTIONS (2)
  - International normalised ratio abnormal [Unknown]
  - Pulmonary thrombosis [Unknown]

NARRATIVE: CASE EVENT DATE: 20200328
